FAERS Safety Report 4435366-X (Version None)
Quarter: 2004Q3

REPORT INFORMATION
  Report Type: 
  Country: None (occurrence: None)
  Receive Date: 20040827
  Receipt Date: 20040827
  Transmission Date: 20050211
  Serious: No
  Sender: FDA-Public Use
  Company Number: None

PATIENT
  Age: 47 Year
  Sex: Female

DRUGS (8)
  1. TOPIRAMATE [Suspect]
     Indication: MIGRAINE PROPHYLAXIS
     Dosage: 400MG QD ORAL
     Route: 048
     Dates: start: 20040201, end: 20040825
  2. OMEPRAZOLE [Concomitant]
  3. PANTOPRAZOLE [Concomitant]
  4. DICYCLOMINE [Concomitant]
  5. HYOSYCAMINE SR [Concomitant]
  6. SUCRALFATE [Concomitant]
  7. NPO [Concomitant]
  8. PANCREATIC ENZYMES [Concomitant]

REACTIONS (4)
  - IRRITABLE BOWEL SYNDROME [None]
  - MARKEDLY REDUCED DIETARY INTAKE [None]
  - PANCREATITIS [None]
  - WEIGHT DECREASED [None]
